FAERS Safety Report 7083949-3 (Version None)
Quarter: 2010Q4

REPORT INFORMATION
  Report Type: 
  Country: None (occurrence: None)
  Receive Date: 20101104
  Receipt Date: 20100406
  Transmission Date: 20110411
  Serious: No
  Sender: FDA-Public Use
  Company Number: US-ABBOTT-10P-163-0638193-00

PATIENT
  Sex: Male
  Weight: 81.72 kg

DRUGS (6)
  1. KALETRA [Suspect]
     Indication: HIV TEST POSITIVE
     Dosage: 2 IN AM, 2 IN PM - 4 PILLS DAILY; 50MG PER PILL
     Route: 048
     Dates: start: 20100301
  2. KALETRA [Suspect]
     Dosage: 2 IN AM, 2 IN PM - 4 PILLS DAILY; 50MG PER PILL
     Route: 048
     Dates: end: 20100201
  3. EPZICOM [Concomitant]
     Indication: HIV TEST POSITIVE
  4. LEUCOVORIN CALCIUM [Concomitant]
     Indication: PRODUCT USED FOR UNKNOWN INDICATION
  5. TRIAPRIN [Concomitant]
     Indication: PRODUCT USED FOR UNKNOWN INDICATION
  6. KEPPRA [Concomitant]
     Indication: PRODUCT USED FOR UNKNOWN INDICATION

REACTIONS (9)
  - ABDOMINAL PAIN [None]
  - DECREASED APPETITE [None]
  - DIPLOPIA [None]
  - DYSPNOEA [None]
  - FEELING ABNORMAL [None]
  - IMMUNODEFICIENCY [None]
  - INCORRECT DRUG ADMINISTRATION DURATION [None]
  - POLLAKIURIA [None]
  - WEIGHT DECREASED [None]
